FAERS Safety Report 5051744-2 (Version None)
Quarter: 2006Q3

REPORT INFORMATION
  Report Type: 
  Country: None (occurrence: None)
  Receive Date: 20060711
  Receipt Date: 20060705
  Transmission Date: 20061208
  Serious: Yes (Death, Other)
  Sender: FDA-Public Use
  Company Number: 200613941BWH

PATIENT
  Age: 89 Year
  Sex: Male
  Weight: 79.7 kg

DRUGS (18)
  1. NEXAVAR [Suspect]
     Indication: RENAL CELL CARCINOMA STAGE UNSPECIFIED
     Dosage: 400 MG, QD, ORAL
     Route: 048
     Dates: start: 20060301, end: 20060501
  2. OMEGA 3 [FISH OIL] [Concomitant]
  3. NITROSTAT [Concomitant]
  4. VITAMIN B COMPLEX CAP [Concomitant]
  5. TEMAZEPAM [Concomitant]
  6. PRILOSEC [Concomitant]
  7. COLACE [Concomitant]
  8. METOPROLOL [Concomitant]
  9. LASIX [Concomitant]
  10. CORDARONE [Concomitant]
  11. ARANESP [Concomitant]
  12. FLOMAX [MORNIFLUMATE] [Concomitant]
  13. FE [Concomitant]
  14. ZETIA [Concomitant]
  15. ASPIRIN [Concomitant]
  16. COZAAR [Concomitant]
  17. FOLIC ACID [Concomitant]
  18. BISACODYL [Concomitant]

REACTIONS (1)
  - ARRHYTHMIA [None]
